FAERS Safety Report 15486317 (Version 1)
Quarter: 2018Q4

REPORT INFORMATION
  Report Type: Spontaneous
  Country: DK (occurrence: DK)
  Receive Date: 20181011
  Receipt Date: 20181011
  Transmission Date: 20190205
  Serious: Yes (Hospitalization)
  Sender: FDA-Public Use
  Company Number: DK-TEVA-2018-DK-959690

PATIENT
  Age: 55 Year
  Sex: Female

DRUGS (3)
  1. AMLODIPIN TEVA 5 MG + 10 MG [Suspect]
     Active Substance: AMLODIPINE BESYLATE
     Indication: BLOOD CHOLESTEROL INCREASED
     Dosage: 20 MILLIGRAM DAILY;
     Route: 065
     Dates: start: 2016
  2. LOSARTAN MEDICAL VALLY [Concomitant]
     Dosage: 50 MILLIGRAM DAILY;
  3. PROPYLTIOURACIL 100 MG [Concomitant]
     Indication: METABOLIC DISORDER
     Dosage: 1,5 IN THE MORNING AND 1 AT NIGHT

REACTIONS (7)
  - Dysgeusia [Unknown]
  - Feeling abnormal [Recovered/Resolved]
  - Foreign body in respiratory tract [Not Recovered/Not Resolved]
  - Nausea [Recovered/Resolved]
  - Blood pressure increased [Recovered/Resolved]
  - Restlessness [Recovered/Resolved]
  - Product solubility abnormal [Not Recovered/Not Resolved]

NARRATIVE: CASE EVENT DATE: 201804
